FAERS Safety Report 23711176 (Version 1)
Quarter: 2024Q2

REPORT INFORMATION
  Report Type: Spontaneous
  Country: AT (occurrence: AT)
  Receive Date: 20240405
  Receipt Date: 20240405
  Transmission Date: 20240716
  Serious: No
  Sender: FDA-Public Use
  Company Number: AT-ALKEM LABORATORIES LIMITED-AT-ALKEM-2024-03203

PATIENT
  Sex: Male

DRUGS (4)
  1. SIROLIMUS [Suspect]
     Active Substance: SIROLIMUS
     Indication: Cutaneous sarcoidosis
     Dosage: UNK, BID (0?1 PERCENT TOPICAL)
     Route: 061
  2. SIROLIMUS [Suspect]
     Active Substance: SIROLIMUS
     Dosage: 6 MILLIGRAM (LOADING DOSE) 1 MG/ML
     Route: 065
  3. SIROLIMUS [Suspect]
     Active Substance: SIROLIMUS
     Dosage: 2 MILLIGRAM, OD
     Route: 048
  4. SIROLIMUS [Suspect]
     Active Substance: SIROLIMUS
     Dosage: UNK
     Route: 058

REACTIONS (1)
  - Treatment noncompliance [Unknown]
